FAERS Safety Report 8519849-9 (Version None)
Quarter: 2012Q3

REPORT INFORMATION
  Report Type: 
  Country: None (occurrence: None)
  Receive Date: 20120719
  Receipt Date: 20120709
  Transmission Date: 20120928
  Serious: No
  Sender: FDA-Public Use
  Company Number: US-BIOGENIDEC-2012BI025189

PATIENT
  Sex: Female

DRUGS (1)
  1. TYSABRI [Suspect]
     Indication: MULTIPLE SCLEROSIS
     Route: 042
     Dates: start: 20100226

REACTIONS (7)
  - PAIN IN EXTREMITY [None]
  - ROTATOR CUFF SYNDROME [None]
  - MUSCLE SPASMS [None]
  - MUSCULOSKELETAL PAIN [None]
  - JOINT DISLOCATION [None]
  - INCORRECT DRUG ADMINISTRATION RATE [None]
  - INFUSION SITE HAEMORRHAGE [None]
